FAERS Safety Report 9198699 (Version 1)
Quarter: 2013Q1

REPORT INFORMATION
  Report Type: Spontaneous
  Country: US (occurrence: None)
  Receive Date: 20130327
  Receipt Date: 20130327
  Transmission Date: 20140127
  Serious: Yes (Life-Threatening, Hospitalization)
  Sender: FDA-Public Use
  Company Number: None

PATIENT
  Age: 49 Year
  Sex: Male
  Weight: 108.86 kg

DRUGS (1)
  1. ANDROGEL 1.62% GEL PUMP [Suspect]
     Indication: BLOOD TESTOSTERONE DECREASED
     Dosage: 2 PUMPS A DAY DAILY TOPICAL
     Route: 061
     Dates: start: 20130203, end: 20130224

REACTIONS (3)
  - Dyspnoea [None]
  - Pain in extremity [None]
  - Thrombosis [None]
